FAERS Safety Report 6911967-1 (Version None)
Quarter: 2010Q3

REPORT INFORMATION
  Report Type: 
  Country: None (occurrence: None)
  Receive Date: 20100806
  Receipt Date: 20080308
  Transmission Date: 20110219
  Serious: No
  Sender: FDA-Public Use
  Company Number: US-PFIZER INC-2007006254

PATIENT
  Sex: Female
  Weight: 70.31 kg

DRUGS (1)
  1. DETROL LA [Suspect]
     Indication: URGE INCONTINENCE
     Route: 048
     Dates: start: 20061001, end: 20061201

REACTIONS (7)
  - DISCOMFORT [None]
  - DRY MOUTH [None]
  - DRY THROAT [None]
  - DYSPHONIA [None]
  - NASAL DRYNESS [None]
  - OROPHARYNGEAL PAIN [None]
  - RESPIRATORY DISORDER [None]
